FAERS Safety Report 8071389-X (Version None)
Quarter: 2012Q1

REPORT INFORMATION
  Report Type: 
  Country: None (occurrence: None)
  Receive Date: 20120119
  Receipt Date: 20120119
  Transmission Date: 20120608
  Serious: Yes (Life-Threatening, Hospitalization)
  Sender: FDA-Public Use
  Company Number: 12-006

PATIENT
  Age: 26 Year
  Sex: Male
  Weight: 95 kg

DRUGS (3)
  1. AMOXICILLIN [Concomitant]
  2. IBUPROFEN [Suspect]
     Indication: PHANTOM PAIN
     Dosage: 600MG/ UNK/ ORAL
     Route: 048
     Dates: start: 20110401, end: 20110701
  3. PREGABALIN [Suspect]
     Indication: PHANTOM PAIN
     Dosage: 300MG/ UNK/ ORAL
     Route: 048
     Dates: start: 20110401, end: 20110701

REACTIONS (1)
  - AGRANULOCYTOSIS [None]
